FAERS Safety Report 20029564 (Version 1)
Quarter: 2021Q4

REPORT INFORMATION
  Report Type: Spontaneous
  Country: IT (occurrence: IT)
  Receive Date: 20211103
  Receipt Date: 20211103
  Transmission Date: 20220303
  Serious: Yes (Other)
  Sender: FDA-Public Use
  Company Number: IT-Hikma Pharmaceuticals USA Inc.-IT-H14001-21-04448

PATIENT
  Age: 7 Month
  Sex: Female

DRUGS (8)
  1. FENTANYL CITRATE [Suspect]
     Active Substance: FENTANYL CITRATE
     Indication: Induction of anaesthesia
     Dosage: 2 MCG/KG
  2. FENTANYL CITRATE [Suspect]
     Active Substance: FENTANYL CITRATE
     Indication: Maintenance of anaesthesia
  3. CISATRACURIUM [Suspect]
     Active Substance: CISATRACURIUM
     Indication: Maintenance of anaesthesia
  4. PROPOFOL [Suspect]
     Active Substance: PROPOFOL
     Indication: Induction of anaesthesia
     Dosage: 3 MG/KG
  5. ROCURONIUM [Suspect]
     Active Substance: ROCURONIUM BROMIDE
     Indication: Induction of anaesthesia
     Dosage: 1 MG/KG
  6. SEVOFLURANE [Suspect]
     Active Substance: SEVOFLURANE
     Indication: Maintenance of anaesthesia
  7. DEXTROSE [Concomitant]
     Active Substance: DEXTROSE
     Indication: Fluid replacement
     Dosage: 4ML/KG/H AT 10%
  8. ELECTROLYTIC BALANCE SOLUTION AND ALBUMIN [Concomitant]
     Indication: Fluid replacement
     Dosage: ALBUMIN 5%

REACTIONS (3)
  - Electrocardiogram QT prolonged [Recovered/Resolved]
  - Blood potassium decreased [Unknown]
  - Supraventricular extrasystoles [Recovered/Resolved]
